FAERS Safety Report 7354549-2 (Version None)
Quarter: 2011Q1

REPORT INFORMATION
  Report Type: 
  Country: None (occurrence: None)
  Receive Date: 20110316
  Receipt Date: 20110104
  Transmission Date: 20110831
  Serious: Yes (Hospitalization, Other)
  Sender: FDA-Public Use
  Company Number: US-BAYER-201040619NA

PATIENT
  Sex: Female
  Weight: 77 kg

DRUGS (5)
  1. ALBUTEROL [Concomitant]
     Indication: ASTHMA
     Dosage: ASTHMA PRN
     Dates: start: 20050101
  2. DEPO-PROVERA [Concomitant]
     Indication: ORAL CONTRACEPTION
  3. YAZ [Suspect]
     Indication: GENITAL HAEMORRHAGE
     Dosage: 1 DF, QD
     Dates: start: 20070910, end: 20071215
  4. IBUPROFEN [Concomitant]
     Indication: MIGRAINE
     Dosage: 1 DF, BID
     Dates: start: 20070101
  5. KENALOG [Concomitant]

REACTIONS (2)
  - CHOLECYSTITIS CHRONIC [None]
  - ABDOMINAL PAIN UPPER [None]
